FAERS Safety Report 7532943-4 (Version None)
Quarter: 2011Q2

REPORT INFORMATION
  Report Type: 
  Country: None (occurrence: None)
  Receive Date: 20110608
  Receipt Date: 20110602
  Transmission Date: 20111010
  Serious: Yes (Death, Other)
  Sender: FDA-Public Use
  Company Number: US-CELGENEUS-163-21880-11060548

PATIENT
  Age: 68 Year
  Sex: Female

DRUGS (12)
  1. ALENDRONATE SODIUM [Concomitant]
     Route: 065
  2. ACYCLOVIR [Concomitant]
     Route: 065
  3. METOPROLOL [Concomitant]
     Route: 065
  4. OMEPRAZOLE [Concomitant]
     Route: 065
  5. SENNA-MINT WAF [Concomitant]
     Route: 065
  6. KLOR-CON [Concomitant]
     Route: 065
  7. DOCUSATE [Concomitant]
     Route: 065
  8. REVLIMID [Suspect]
     Dosage: 10 MILLIGRAM
     Route: 048
     Dates: start: 20101101, end: 20110101
  9. FUROSEMIDE [Concomitant]
     Route: 065
  10. PROAIR HFA [Concomitant]
     Route: 065
  11. LACTULOSE [Concomitant]
     Route: 065
  12. OXYCODONE HCL AND ACETAMINOPHEN [Concomitant]
     Route: 065

REACTIONS (4)
  - DEATH [None]
  - NO THERAPEUTIC RESPONSE [None]
  - ACUTE MYELOID LEUKAEMIA [None]
  - MYELODYSPLASTIC SYNDROME TRANSFORMATION [None]
